FAERS Safety Report 8415164-2 (Version None)
Quarter: 2012Q2

REPORT INFORMATION
  Report Type: 
  Country: None (occurrence: None)
  Receive Date: 20120606
  Receipt Date: 20120529
  Transmission Date: 20120825
  Serious: Yes (Other)
  Sender: FDA-Public Use
  Company Number: US-PFIZER INC-2012046572

PATIENT
  Sex: Female
  Weight: 73 kg

DRUGS (1)
  1. LO/OVRAL-28 [Suspect]
     Indication: CONTRACEPTION
     Dosage: UNK
     Dates: start: 20111101, end: 20120101

REACTIONS (5)
  - DRUG INEFFECTIVE [None]
  - UNINTENDED PREGNANCY [None]
  - LIGAMENT SPRAIN [None]
  - FALL [None]
  - JOINT INJURY [None]
